FAERS Safety Report 4447218-X (Version None)
Quarter: 2004Q3

REPORT INFORMATION
  Report Type: 
  Country: None (occurrence: None)
  Receive Date: 20040813
  Receipt Date: 20040712
  Transmission Date: 20050211
  Serious: No
  Sender: FDA-Public Use
  Company Number: S04-USA-04006-01

PATIENT
  Age: 92 Year
  Sex: Female

DRUGS (6)
  1. NAMENDA [Suspect]
     Indication: DEMENTIA ALZHEIMER'S TYPE
     Dosage: 5 MG QD PO
     Route: 048
     Dates: start: 20040702, end: 20040708
  2. NAMENDA [Suspect]
     Indication: DEMENTIA ALZHEIMER'S TYPE
     Dosage: 5 MG BID PO
     Route: 048
     Dates: start: 20040709
  3. ASPIRIN [Concomitant]
  4. IBUPROFEN [Concomitant]
  5. TYLENOL PM [Concomitant]
  6. MULTIVITAMIN [Concomitant]

REACTIONS (3)
  - DECREASED APPETITE [None]
  - OEDEMA PERIPHERAL [None]
  - VOMITING [None]
